FAERS Safety Report 7156668-2 (Version None)
Quarter: 2010Q4

REPORT INFORMATION
  Report Type: 
  Country: None (occurrence: None)
  Receive Date: 20101214
  Receipt Date: 20100310
  Transmission Date: 20110411
  Serious: No
  Sender: FDA-Public Use
  Company Number: US-ASTRAZENECA-2009SE28591

PATIENT
  Age: 57 Year
  Sex: Male
  Weight: 77.1 kg

DRUGS (1)
  1. CRESTOR [Suspect]
     Route: 048
     Dates: start: 20080101, end: 20100201

REACTIONS (4)
  - ARTHRALGIA [None]
  - DRUG DISPENSING ERROR [None]
  - MYALGIA [None]
  - PAIN IN EXTREMITY [None]
